FAERS Safety Report 20867217 (Version 1)
Quarter: 2022Q2

REPORT INFORMATION
  Report Type: Spontaneous
  Country: US (occurrence: None)
  Receive Date: 20220523
  Receipt Date: 20220523
  Transmission Date: 20220721
  Serious: No
  Sender: FDA-Public Use
  Company Number: None

PATIENT
  Age: 58 Year
  Sex: Female

DRUGS (1)
  1. OXALIPLATIN [Suspect]
     Active Substance: OXALIPLATIN
     Dosage: OTHER  OTHER
     Dates: start: 202203, end: 202204

REACTIONS (2)
  - Blood potassium decreased [None]
  - Cardiac disorder [None]

NARRATIVE: CASE EVENT DATE: 20220425
